FAERS Safety Report 14282718 (Version 1)
Quarter: 2017Q4

REPORT INFORMATION
  Report Type: Spontaneous
  Country: US (occurrence: US)
  Receive Date: 20171213
  Receipt Date: 20171213
  Transmission Date: 20180321
  Serious: No
  Sender: FDA-Public Use
  Company Number: US-ALLERGAN-1681961US

PATIENT
  Sex: Female

DRUGS (1)
  1. TEFLARO [Suspect]
     Active Substance: CEFTAROLINE FOSAMIL
     Indication: STAPHYLOCOCCAL INFECTION
     Dosage: 400 MG, Q8HR
     Route: 065

REACTIONS (3)
  - Off label use [Unknown]
  - Neutropenia [Recovered/Resolved]
  - Pregnancy [Unknown]
